FAERS Safety Report 12764315 (Version 1)
Quarter: 2016Q3

REPORT INFORMATION
  Report Type: Spontaneous
  Country: US (occurrence: US)
  Receive Date: 20160920
  Receipt Date: 20160920
  Transmission Date: 20161109
  Serious: Yes (Other)
  Sender: FDA-Public Use
  Company Number: US-PFIZER INC-2016422684

PATIENT
  Age: 52 Year
  Sex: Female

DRUGS (4)
  1. FEMARA [Concomitant]
     Active Substance: LETROZOLE
     Indication: DRUG THERAPY ENHANCEMENT
     Dosage: 1 AT NIGHT WITH IBRANCE
  2. IBRANCE [Suspect]
     Active Substance: PALBOCICLIB
     Indication: PROPHYLAXIS
     Dosage: 125 MG, ONCE DAILY AT NIGHT, 21 DAYS ON IBRANCE, 7 DAY BREAK OFF IBRANCE.
     Route: 048
  3. IBRANCE [Suspect]
     Active Substance: PALBOCICLIB
     Indication: BREAST CANCER
  4. PRILOSEC [Concomitant]
     Active Substance: OMEPRAZOLE MAGNESIUM
     Indication: GASTROOESOPHAGEAL REFLUX DISEASE
     Dosage: 1 DF, 2X/DAY, 1 IN THE MORNING AND ONE AT NIGHT

REACTIONS (6)
  - Vomiting [Not Recovered/Not Resolved]
  - Drug dependence [Not Recovered/Not Resolved]
  - Nausea [Not Recovered/Not Resolved]
  - Feeling abnormal [Not Recovered/Not Resolved]
  - Malaise [Unknown]
  - Drug dose omission [Unknown]

NARRATIVE: CASE EVENT DATE: 201601
